FAERS Safety Report 12483838 (Version 2)
Quarter: 2016Q2

REPORT INFORMATION
  Report Type: Spontaneous
  Country: IR (occurrence: IR)
  Receive Date: 20160621
  Receipt Date: 20160628
  Transmission Date: 20160815
  Serious: Yes (Hospitalization, Other)
  Sender: FDA-Public Use
  Company Number: IR-MACLEODS PHARMACEUTICALS US LTD-MAC2016002833

PATIENT

DRUGS (1)
  1. TRAMADOL HYDROCHLORIDE TABLET [Suspect]
     Active Substance: TRAMADOL HYDROCHLORIDE
     Indication: PRODUCT USED FOR UNKNOWN INDICATION
     Dosage: 2 DF, SINGLE DOSE (2 TABLETS OF 200MG TABLET) CONSUMED 2 HRS AGO
     Route: 048

REACTIONS (2)
  - Sinus bradycardia [Recovered/Resolved]
  - Toxicity to various agents [Recovered/Resolved]
